FAERS Safety Report 24752400 (Version 1)
Quarter: 2024Q4

REPORT INFORMATION
  Report Type: Report from Study
  Country: IE (occurrence: IE)
  Receive Date: 20241219
  Receipt Date: 20241219
  Transmission Date: 20250114
  Serious: Yes (Other)
  Sender: ALEXION PHARMACEUTICALS
  Company Number: IE-ASTRAZENECA-202410EEA014756IE

PATIENT
  Age: 65 Year

DRUGS (34)
  1. BENRALIZUMAB [Suspect]
     Active Substance: BENRALIZUMAB
     Dosage: 30 MILLIGRAM AS PER PRESCRIPTION
  2. BENRALIZUMAB [Suspect]
     Active Substance: BENRALIZUMAB
     Dosage: 30 MILLIGRAM AS PER PRESCRIPTION
     Route: 058
  3. BENRALIZUMAB [Suspect]
     Active Substance: BENRALIZUMAB
     Dosage: 30 MILLIGRAM AS PER PRESCRIPTION
  4. BENRALIZUMAB [Suspect]
     Active Substance: BENRALIZUMAB
     Dosage: 30 MILLIGRAM AS PER PRESCRIPTION
     Route: 058
  5. BENRALIZUMAB [Suspect]
     Active Substance: BENRALIZUMAB
     Dosage: 30 MILLIGRAM AS PER PRESCRIPTION
  6. BENRALIZUMAB [Suspect]
     Active Substance: BENRALIZUMAB
     Dosage: 30 MILLIGRAM AS PER PRESCRIPTION
     Route: 058
  7. BENRALIZUMAB [Suspect]
     Active Substance: BENRALIZUMAB
     Dosage: 30 MILLIGRAM AS PER PRESCRIPTION
  8. BENRALIZUMAB [Suspect]
     Active Substance: BENRALIZUMAB
     Dosage: 30 MILLIGRAM AS PER PRESCRIPTION
     Route: 058
  9. BENRALIZUMAB [Suspect]
     Active Substance: BENRALIZUMAB
     Dosage: 30 MILLIGRAM AS PER PRESCRIPTION
  10. BENRALIZUMAB [Suspect]
     Active Substance: BENRALIZUMAB
     Dosage: 30 MILLIGRAM AS PER PRESCRIPTION
     Route: 058
  11. BENRALIZUMAB [Suspect]
     Active Substance: BENRALIZUMAB
     Dosage: 30 MILLIGRAM AS PER PRESCRIPTION
  12. BENRALIZUMAB [Suspect]
     Active Substance: BENRALIZUMAB
     Dosage: 30 MILLIGRAM AS PER PRESCRIPTION
     Route: 058
  13. GLYCOPYRROLATE\INDACATEROL\MOMETASONE FUROATE [Concomitant]
     Active Substance: GLYCOPYRROLATE\INDACATEROL\MOMETASONE FUROATE
     Dosage: 1 MILLIGRAM, UNKNOWN FREQUENCY
     Route: 050
  14. GLYCOPYRROLATE\INDACATEROL\MOMETASONE FUROATE [Concomitant]
     Active Substance: GLYCOPYRROLATE\INDACATEROL\MOMETASONE FUROATE
     Dosage: 1 MILLIGRAM, UNKNOWN FREQUENCY
     Route: 050
  15. FLUTICASONE FUROATE [Concomitant]
     Active Substance: FLUTICASONE FUROATE
     Dosage: 1 MILLIGRAM, UNKNOWN FREQUENCY
     Route: 050
  16. FLUTICASONE FUROATE [Concomitant]
     Active Substance: FLUTICASONE FUROATE
     Dosage: 1 MILLIGRAM, UNKNOWN FREQUENCY
     Route: 050
  17. ALVESCO [Concomitant]
     Active Substance: CICLESONIDE
     Dosage: 160 MILLIGRAM, UNKNOWN FREQUENCY
     Route: 050
  18. ALVESCO [Concomitant]
     Active Substance: CICLESONIDE
     Dosage: 160 MILLIGRAM, UNKNOWN FREQUENCY
     Route: 050
  19. ASPIRIN [Concomitant]
     Active Substance: ASPIRIN
     Dosage: 75 MILLIGRAM, UNKNOWN FREQUENCY
     Route: 050
  20. ASPIRIN [Concomitant]
     Active Substance: ASPIRIN
     Dosage: 75 MILLIGRAM, UNKNOWN FREQUENCY
     Route: 050
  21. TICAGRELOR [Concomitant]
     Active Substance: TICAGRELOR
     Dosage: 90 MILLIGRAM, UNKNOWN FREQUENCY
     Route: 050
  22. TICAGRELOR [Concomitant]
     Active Substance: TICAGRELOR
     Dosage: 90 MILLIGRAM, UNKNOWN FREQUENCY
     Route: 050
  23. RAMIPRIL [Concomitant]
     Active Substance: RAMIPRIL
     Dosage: 2.5 MILLIGRAM, UNKNOWN FREQUENCY
     Route: 050
  24. RAMIPRIL [Concomitant]
     Active Substance: RAMIPRIL
     Dosage: 2.5 MILLIGRAM, UNKNOWN FREQUENCY
     Route: 050
  25. CALCIUM CARBONATE [Concomitant]
     Active Substance: CALCIUM CARBONATE
     Dosage: 500 MILLIGRAM, UNKNOWN FREQUENCY
     Route: 050
  26. CALCIUM CARBONATE [Concomitant]
     Active Substance: CALCIUM CARBONATE
     Dosage: 500 MILLIGRAM, UNKNOWN FREQUENCY
     Route: 050
  27. FOSAVANCE [Concomitant]
     Active Substance: ALENDRONATE SODIUM\CHOLECALCIFEROL
     Dosage: 1 MILLIGRAM, UNKNOWN FREQUENCY
     Route: 050
  28. FOSAVANCE [Concomitant]
     Active Substance: ALENDRONATE SODIUM\CHOLECALCIFEROL
     Dosage: 1 MILLIGRAM, UNKNOWN FREQUENCY
     Route: 050
  29. MONTELUKAST [Concomitant]
     Active Substance: MONTELUKAST SODIUM
     Dosage: 10 MILLIGRAM, UNKNOWN FREQUENCY
     Route: 050
  30. MONTELUKAST [Concomitant]
     Active Substance: MONTELUKAST SODIUM
     Dosage: 10 MILLIGRAM, UNKNOWN FREQUENCY
     Route: 050
  31. EZETIMIBE\PITAVASTATIN CALCIUM [Concomitant]
     Active Substance: EZETIMIBE\PITAVASTATIN CALCIUM
     Dosage: UNK
     Route: 050
  32. EZETIMIBE\PITAVASTATIN CALCIUM [Concomitant]
     Active Substance: EZETIMIBE\PITAVASTATIN CALCIUM
     Dosage: UNK
     Route: 050
  33. TAMSULOSIN HYDROCHLORIDE [Concomitant]
     Active Substance: TAMSULOSIN HYDROCHLORIDE
     Dosage: 30 MILLIGRAM, UNKNOWN FREQUENCY
     Route: 050
  34. TAMSULOSIN HYDROCHLORIDE [Concomitant]
     Active Substance: TAMSULOSIN HYDROCHLORIDE
     Dosage: 30 MILLIGRAM, UNKNOWN FREQUENCY
     Route: 050

REACTIONS (3)
  - Cough [Not Recovered/Not Resolved]
  - Sputum increased [Unknown]
  - Lower respiratory tract infection [Not Recovered/Not Resolved]
